FAERS Safety Report 4780301-8 (Version None)
Quarter: 2005Q3

REPORT INFORMATION
  Report Type: 
  Country: None (occurrence: None)
  Receive Date: 20050926
  Receipt Date: 20050926
  Transmission Date: 20060218
  Serious: Yes (Hospitalization)
  Sender: FDA-Public Use
  Company Number: None

PATIENT
  Age: 14 Year
  Sex: Male
  Weight: 98 kg

DRUGS (1)
  1. ROACCUTANE 20MG  ROCHE PRODUCTS [Suspect]
     Dosage: 20MG  2 CAPSULES PO
     Route: 048
     Dates: start: 20050803, end: 20050912

REACTIONS (1)
  - HOSPITALISATION [None]
